FAERS Safety Report 5270576-3 (Version None)
Quarter: 2007Q1

REPORT INFORMATION
  Report Type: 
  Country: None (occurrence: None)
  Receive Date: 20070315
  Receipt Date: 20070308
  Transmission Date: 20070707
  Serious: Yes (Other)
  Sender: FDA-Public Use
  Company Number: 237338

PATIENT
  Age: 52 Year
  Sex: Female

DRUGS (8)
  1. XOLAIR [Suspect]
     Indication: DRUG USE FOR UNKNOWN INDICATION
     Dosage: 150 MG, Q4W, SUBCUTANEOUS
     Route: 058
     Dates: start: 20061122
  2. ADVAIR DISKUS 100/50 [Concomitant]
  3. PREVACID [Concomitant]
  4. ALBUTEROL (ALBUTEROL/ALBUTEROL SULFATE) [Concomitant]
  5. MULTI VITAMIN/MINERAL (MINERALS NOS, MULTIVITAMINS NOS) [Concomitant]
  6. CETIRIZINE HCL [Concomitant]
  7. METAMUCIL (PSYLLIUM HUSK) [Concomitant]
  8. ASTELIN [Concomitant]

REACTIONS (1)
  - ANAPHYLACTIC REACTION [None]
